FAERS Safety Report 7120836-6 (Version None)
Quarter: 2010Q4

REPORT INFORMATION
  Report Type: 
  Country: None (occurrence: None)
  Receive Date: 20101124
  Receipt Date: 20091210
  Transmission Date: 20110411
  Serious: No
  Sender: FDA-Public Use
  Company Number: US-PFIZER INC-2009281391

PATIENT
  Sex: Female
  Weight: 47.166 kg

DRUGS (6)
  1. TIKOSYN [Suspect]
     Indication: ATRIAL FIBRILLATION
     Dosage: FREQUENCY: 2X\DAY,
     Route: 048
     Dates: start: 20090714
  2. TOPROL-XL [Concomitant]
  3. NORVASC [Concomitant]
  4. TIMOLOL [Concomitant]
     Indication: GLAUCOMA
  5. FOSAMAX [Concomitant]
  6. TRAVATAN [Concomitant]

REACTIONS (14)
  - ASTHENIA [None]
  - CHEST DISCOMFORT [None]
  - COUGH [None]
  - CRYING [None]
  - DECREASED APPETITE [None]
  - DRY MOUTH [None]
  - DYSPNOEA [None]
  - FATIGUE [None]
  - HEADACHE [None]
  - HEART RATE INCREASED [None]
  - INSOMNIA [None]
  - PAIN [None]
  - POLLAKIURIA [None]
  - SOMNOLENCE [None]
